FAERS Safety Report 20050067 (Version 1)
Quarter: 2021Q4

REPORT INFORMATION
  Report Type: Spontaneous
  Country: US (occurrence: None)
  Receive Date: 20211109
  Receipt Date: 20211109
  Transmission Date: 20220303
  Serious: Yes (Death)
  Sender: FDA-Public Use
  Company Number: None

PATIENT
  Age: 64 Year
  Sex: Female
  Weight: 51 kg

DRUGS (14)
  1. TAFINLAR [Suspect]
     Active Substance: DABRAFENIB MESYLATE
     Indication: Colon cancer
     Dosage: OTHER FREQUENCY : Q12H;?
     Route: 048
     Dates: start: 20210408, end: 20211108
  2. MEKINIST [Suspect]
     Active Substance: TRAMETINIB DIMETHYL SULFOXIDE
     Indication: Colon cancer
     Dosage: FREQUENCY : DAILY;?
     Route: 048
     Dates: start: 20210408, end: 20211108
  3. ONDANSETRON [Concomitant]
     Active Substance: ONDANSETRON
  4. OXYCODONE [Concomitant]
     Active Substance: OXYCODONE
  5. MAGNESIUM [Concomitant]
     Active Substance: MAGNESIUM
  6. Ferro-Sequels 65-25mg [Concomitant]
  7. AMLODIPINE [Concomitant]
     Active Substance: AMLODIPINE BESYLATE
  8. AUGMENTIN [Concomitant]
     Active Substance: AMOXICILLIN\CLAVULANATE POTASSIUM
  9. BENZOCAINE [Concomitant]
     Active Substance: BENZOCAINE
  10. LIDOCAINE [Concomitant]
     Active Substance: LIDOCAINE
  11. METOCLOPRAMIDE [Concomitant]
     Active Substance: METOCLOPRAMIDE
  12. VITAMINS [Concomitant]
     Active Substance: VITAMINS
  13. NEULASTA [Concomitant]
     Active Substance: PEGFILGRASTIM
  14. Klor-Con M20 20mEq [Concomitant]

REACTIONS (1)
  - Death [None]

NARRATIVE: CASE EVENT DATE: 20211108
